FAERS Safety Report 11236302 (Version 1)
Quarter: 2015Q3

REPORT INFORMATION
  Report Type: Spontaneous
  Country: US (occurrence: US)
  Receive Date: 20150702
  Receipt Date: 20150702
  Transmission Date: 20151125
  Serious: Yes (Hospitalization)
  Sender: FDA-Public Use
  Company Number: US-BAUSCH-BL-2015-016337

PATIENT
  Age: 10 Year
  Sex: Female

DRUGS (1)
  1. ALBUTEROL. [Suspect]
     Active Substance: ALBUTEROL
     Indication: WHEEZING
     Route: 065

REACTIONS (3)
  - Hypokalaemia [Recovered/Resolved]
  - Familial periodic paralysis [Unknown]
  - Hyperglycaemia [Unknown]
